FAERS Safety Report 13051574 (Version 1)
Quarter: 2016Q4

REPORT INFORMATION
  Report Type: Spontaneous
  Country: US (occurrence: US)
  Receive Date: 20161221
  Receipt Date: 20161221
  Transmission Date: 20170207
  Serious: No
  Sender: FDA-Public Use
  Company Number: US-BAYER-2016-241887

PATIENT
  Sex: Male
  Weight: 81.18 kg

DRUGS (2)
  1. ALEVE [Suspect]
     Active Substance: NAPROXEN SODIUM
     Indication: HEADACHE
     Dosage: UNK, PRN
  2. SUTENT [Concomitant]
     Active Substance: SUNITINIB MALATE
     Indication: RENAL CANCER METASTATIC
     Dosage: 50 MG, QD, D 1-28 Q 42 DAYS
     Route: 048
     Dates: start: 20141104

REACTIONS (1)
  - Drug ineffective [Unknown]
